FAERS Safety Report 4795957-3 (Version None)
Quarter: 2005Q4

REPORT INFORMATION
  Report Type: 
  Country: None (occurrence: None)
  Receive Date: 20051012
  Receipt Date: 20051004
  Transmission Date: 20060501
  Serious: Yes (Hospitalization, Disabling)
  Sender: FDA-Public Use
  Company Number: US-MERCK-0510USA03230

PATIENT
  Age: 73 Year
  Sex: Female

DRUGS (3)
  1. VYTORIN [Suspect]
     Indication: BLOOD CHOLESTEROL INCREASED
     Route: 048
     Dates: start: 20050602, end: 20050706
  2. PREDNISONE [Concomitant]
     Route: 065
  3. NIACIN [Concomitant]
     Route: 065

REACTIONS (3)
  - BLOOD GLUCOSE DECREASED [None]
  - INFLAMMATION [None]
  - MYOPATHY [None]
